FAERS Safety Report 19089772 (Version 2)
Quarter: 2021Q3

REPORT INFORMATION
  Report Type: Report from Study
  Country: US (occurrence: US)
  Receive Date: 20210403
  Receipt Date: 20210707
  Transmission Date: 20211014
  Serious: No
  Sender: FDA-Public Use
  Company Number: NVSC2021US073939

PATIENT
  Age: 57 Year

DRUGS (1)
  1. COSENTYX [Suspect]
     Active Substance: SECUKINUMAB
     Indication: PSORIASIS
     Dosage: 300 MG, QW (QW FOR FIVE WEEKS AND THEN Q4W)
     Route: 058
     Dates: start: 20210225

REACTIONS (6)
  - Cough [Unknown]
  - Headache [Unknown]
  - Skin lesion [Unknown]
  - Oropharyngeal pain [Unknown]
  - Upper respiratory tract congestion [Unknown]
  - Ear pain [Unknown]

NARRATIVE: CASE EVENT DATE: 20210326
